FAERS Safety Report 6876381-6 (Version None)
Quarter: 2010Q2

REPORT INFORMATION
  Report Type: 
  Country: None (occurrence: None)
  Receive Date: 20100616
  Receipt Date: 20100414
  Transmission Date: 20101027
  Serious: No
  Sender: FDA-Public Use
  Company Number: DSA_42948_2010

PATIENT
  Sex: Female

DRUGS (5)
  1. XENAZINE [Suspect]
     Indication: HUNTINGTON'S CHOREA
     Dosage: (50 MG BID ORAL) ; (25 MG BID ORAL) ; (DF ORAL)
     Route: 048
     Dates: start: 20090101, end: 20100201
  2. XENAZINE [Suspect]
     Indication: HUNTINGTON'S CHOREA
     Dosage: (50 MG BID ORAL) ; (25 MG BID ORAL) ; (DF ORAL)
     Route: 048
     Dates: start: 20100201, end: 20100201
  3. XENAZINE [Suspect]
     Indication: HUNTINGTON'S CHOREA
     Dosage: (50 MG BID ORAL) ; (25 MG BID ORAL) ; (DF ORAL)
     Route: 048
     Dates: start: 20100201
  4. ANTIDEPRESANTS [Concomitant]
  5. SINUS /01008201/ [Concomitant]

REACTIONS (5)
  - DECREASED APPETITE [None]
  - DIARRHOEA [None]
  - LETHARGY [None]
  - SOMNOLENCE [None]
  - VOMITING [None]
